FAERS Safety Report 10723422 (Version 1)
Quarter: 2015Q1

REPORT INFORMATION
  Report Type: Spontaneous
  Country: KR (occurrence: None)
  Receive Date: 20150115
  Receipt Date: 20150115
  Transmission Date: 20150721
  Serious: Yes (Disabling, Other)
  Sender: FDA-Public Use
  Company Number: FK201500069

PATIENT
  Age: 79 Year
  Sex: Male

DRUGS (2)
  1. TRIAMCINOLONE [Suspect]
     Active Substance: TRIAMCINOLONE
     Indication: BACK PAIN
     Dosage: 4 EPIDURAL INJECTIONS, EPIDURAL
     Route: 008
  2. DEXAMETHASONE INJECTION (MANUFACTURER UNKNOWN) (DEXAMETHASONE SODIUM PHOSPHATE ) (DEXAMETHASONE SODIUM PHOSPHATE) [Suspect]
     Active Substance: DEXAMETHASONE
     Indication: BACK PAIN
     Dosage: 4 EPIDURAL INJECTION, EPIDURAL
     Route: 008

REACTIONS (3)
  - Retinal pigment epithelial tear [None]
  - Chorioretinopathy [None]
  - Visual acuity reduced [None]
